FAERS Safety Report 7970019-2 (Version None)
Quarter: 2011Q4

REPORT INFORMATION
  Report Type: 
  Country: None (occurrence: None)
  Receive Date: 20111212
  Receipt Date: 20111207
  Transmission Date: 20120403
  Serious: No
  Sender: FDA-Public Use
  Company Number: US-B.I. PHARMACEUTICALS,INC./RIDGEFIELD-2011-BP-27674BP

PATIENT
  Age: 60 Year
  Sex: Male

DRUGS (3)
  1. TRADJENTA [Suspect]
  2. CHOLESTEROL MED [Concomitant]
  3. METFORMIN HCL [Concomitant]

REACTIONS (1)
  - ASTHENIA [None]
